FAERS Safety Report 21265163 (Version 3)
Quarter: 2022Q4

REPORT INFORMATION
  Report Type: Other
  Country: BR (occurrence: None)
  Receive Date: 20220829
  Receipt Date: 20221021
  Transmission Date: 20230112
  Serious: Yes (Other)
  Sender: FDA-Public Use
  Company Number: BR-ROCHE-3166371

PATIENT
  Sex: Female

DRUGS (4)
  1. UNSPECIFIED INGREDIENT [Suspect]
     Active Substance: UNSPECIFIED INGREDIENT
     Indication: Product used for unknown indication
     Route: 065
  2. ALBUTEROL [Concomitant]
     Active Substance: ALBUTEROL
     Dosage: QD
     Route: 048
  3. SERTRALINE [Concomitant]
     Active Substance: SERTRALINE HYDROCHLORIDE
     Route: 048
  4. SPIRIVA RESPIMAT [Concomitant]
     Active Substance: TIOTROPIUM BROMIDE
     Route: 055

REACTIONS (2)
  - Neutropenia [Recovering/Resolving]
  - Neuropathy peripheral [Unknown]

NARRATIVE: CASE EVENT DATE: 20220101
